FAERS Safety Report 22078093 (Version 3)
Quarter: 2023Q2

REPORT INFORMATION
  Report Type: Spontaneous
  Country: AR (occurrence: AR)
  Receive Date: 20230309
  Receipt Date: 20230508
  Transmission Date: 20230722
  Serious: Yes (Other)
  Sender: FDA-Public Use
  Company Number: AR-PFIZER INC-PV202300044426

PATIENT
  Age: 83 Year
  Sex: Female

DRUGS (5)
  1. IBRANCE [Suspect]
     Active Substance: PALBOCICLIB
     Indication: Breast cancer metastatic
     Dosage: 125 MG, CYCLIC( DAILY 3X1 SCHEME)
     Dates: start: 20220407
  2. IBRANCE [Suspect]
     Active Substance: PALBOCICLIB
     Dosage: 125 MG, CYCLIC( DAILY 3X1 SCHEME)
     Dates: start: 20230428
  3. LETROZOLE [Concomitant]
     Active Substance: LETROZOLE
  4. DIOSMIN\HESPERIDIN [Concomitant]
     Active Substance: DIOSMIN\HESPERIDIN
  5. ASPIRIN [Concomitant]
     Active Substance: ASPIRIN

REACTIONS (3)
  - White blood cell count abnormal [Not Recovered/Not Resolved]
  - Laboratory test abnormal [Recovered/Resolved]
  - Alopecia [Not Recovered/Not Resolved]

NARRATIVE: CASE EVENT DATE: 20230301
